FAERS Safety Report 12566218 (Version 2)
Quarter: 2016Q3

REPORT INFORMATION
  Report Type: Spontaneous
  Country: US (occurrence: US)
  Receive Date: 20160718
  Receipt Date: 20160720
  Transmission Date: 20161109
  Serious: Yes (Other)
  Sender: FDA-Public Use
  Company Number: US-LPDUSPRD-20160609

PATIENT
  Age: 34 Year
  Sex: Female

DRUGS (1)
  1. INJECTAFER [Suspect]
     Active Substance: FERRIC CARBOXYMALTOSE
     Dosage: 750 MG
     Route: 042
     Dates: start: 20160712, end: 20160712

REACTIONS (8)
  - Screaming [Unknown]
  - Abdominal pain [Unknown]
  - Pain [Unknown]
  - Hyperhidrosis [Unknown]
  - Gastrointestinal pain [Unknown]
  - Dyspnoea [Unknown]
  - Chest pain [Unknown]
  - Diarrhoea [Unknown]

NARRATIVE: CASE EVENT DATE: 20160712
